FAERS Safety Report 12759893 (Version 1)
Quarter: 2016Q3

REPORT INFORMATION
  Report Type: Report from Study
  Country: US (occurrence: US)
  Receive Date: 20160919
  Receipt Date: 20160919
  Transmission Date: 20161109
  Serious: Yes (Hospitalization)
  Sender: FDA-Public Use
  Company Number: PHHO2016US008233

PATIENT
  Age: 67 Year
  Sex: Female
  Weight: 69.31 kg

DRUGS (3)
  1. IFOSFAMIDE. [Suspect]
     Active Substance: IFOSFAMIDE
     Indication: SOFT TISSUE NEOPLASM
     Dosage: 1177 MG, UNK
     Route: 042
     Dates: start: 20160503, end: 20160504
  2. PAZOPANIB [Suspect]
     Active Substance: PAZOPANIB
     Indication: SOFT TISSUE NEOPLASM
     Dosage: 3000 MG, UNK
     Route: 048
     Dates: start: 20160412, end: 20160509
  3. DOXORUBICIN [Suspect]
     Active Substance: DOXORUBICIN
     Indication: SOFT TISSUE NEOPLASM
     Dosage: 132.76 MG, UNK
     Route: 042
     Dates: start: 20160503, end: 20160504

REACTIONS (4)
  - Soft tissue necrosis [Recovering/Resolving]
  - Pseudomonas infection [Recovering/Resolving]
  - Fatigue [Recovering/Resolving]
  - Sepsis [Recovering/Resolving]

NARRATIVE: CASE EVENT DATE: 20160426
